FAERS Safety Report 6555013-0 (Version None)
Quarter: 2010Q1

REPORT INFORMATION
  Report Type: 
  Country: None (occurrence: None)
  Receive Date: 20100126
  Receipt Date: 20100126
  Transmission Date: 20100710
  Serious: No
  Sender: FDA-Public Use
  Company Number: None

PATIENT
  Age: 67 Year
  Sex: Male
  Weight: 68.2 kg

DRUGS (1)
  1. TRIAMETERENE AND HYDROCHLOROTHIAZIDE [Suspect]
     Indication: PREHYPERTENSION
     Dosage: 1 DAILY ORAL
     Route: 048
     Dates: start: 20100112, end: 20100115

REACTIONS (2)
  - ABNORMAL DREAMS [None]
  - SLEEP DISORDER [None]
